FAERS Safety Report 10847035 (Version 1)
Quarter: 2015Q1

REPORT INFORMATION
  Report Type: Spontaneous
  Country: US (occurrence: US)
  Receive Date: 20150220
  Receipt Date: 20150220
  Transmission Date: 20150721
  Serious: Yes (Other)
  Sender: FDA-Public Use
  Company Number: US-JAZZ-2015-US-002514

PATIENT
  Sex: Female
  Weight: 77.98 kg

DRUGS (18)
  1. XYREM [Suspect]
     Active Substance: SODIUM OXYBATE
     Indication: FIBROMYALGIA
     Dosage: 4.5 G, BID
     Route: 048
     Dates: start: 200703, end: 2010
  2. QUETIAPINE [Concomitant]
     Active Substance: QUETIAPINE
     Indication: DEPRESSION
     Dosage: 50 MG, QD
     Route: 048
  3. L CARNITINE [Concomitant]
     Active Substance: LEVOCARNITINE
  4. XYREM [Suspect]
     Active Substance: SODIUM OXYBATE
     Dosage: DOSE ADJUSTMENTS
     Route: 048
  5. MODAFINIL. [Concomitant]
     Active Substance: MODAFINIL
     Indication: FATIGUE
     Dosage: 300 MG, QD
     Route: 048
  6. QUETIAPINE [Concomitant]
     Active Substance: QUETIAPINE
     Indication: ANXIETY
  7. ZANTAC [Concomitant]
     Active Substance: RANITIDINE HYDROCHLORIDE
     Indication: GASTROOESOPHAGEAL REFLUX DISEASE
     Dosage: 150 MG, QD
     Route: 048
  8. WELLBUTRIN XL [Concomitant]
     Active Substance: BUPROPION HYDROCHLORIDE
     Indication: DEPRESSION
     Dosage: 300 MG, QD
     Route: 048
  9. PREMARIN [Concomitant]
     Active Substance: ESTROGENS, CONJUGATED
     Indication: VULVOVAGINAL DRYNESS
     Dosage: UNK
     Route: 067
  10. XYREM [Suspect]
     Active Substance: SODIUM OXYBATE
     Dosage: 3 G, BID
     Route: 048
     Dates: start: 201402
  11. TRIAMCINOLONE [Concomitant]
     Active Substance: TRIAMCINOLONE
     Indication: SCAB
     Dosage: UNK
     Route: 061
  12. VITAMIN B COMPLEX [Concomitant]
     Active Substance: CYANOCOBALAMIN\DEXPANTHENOL\NIACINAMIDE\PYRIDOXINE HYDROCHLORIDE\RIBOFLAVIN 5^-PHOSPHATE SODIUM\THIAMINE HYDROCHLORIDE\VITAMIN B COMPLEX
  13. WELCHOL [Concomitant]
     Active Substance: COLESEVELAM HYDROCHLORIDE
     Indication: BLOOD CHOLESTEROL ABNORMAL
     Dosage: 625 MG, BID
     Route: 048
  14. DULOXETINE HYDROCHLORIDE. [Concomitant]
     Active Substance: DULOXETINE HYDROCHLORIDE
     Indication: DEPRESSION
     Dosage: 90 MG, QD
     Route: 048
  15. PANTOPRAZOLE [Concomitant]
     Active Substance: PANTOPRAZOLE SODIUM
     Indication: GASTROOESOPHAGEAL REFLUX DISEASE
     Dosage: 40 MG, QD
     Route: 048
  16. TOPIRAMATE. [Concomitant]
     Active Substance: TOPIRAMATE
     Indication: EYE PAIN
     Dosage: 50 MG, QD
     Route: 048
  17. VITAMIN D [Concomitant]
     Active Substance: CHOLECALCIFEROL
     Indication: VITAMIN D DECREASED
     Dosage: 5000 IU, QW
     Route: 048
  18. COENZYME Q10 [Concomitant]
     Active Substance: UBIDECARENONE

REACTIONS (3)
  - Breast mass [Not Recovered/Not Resolved]
  - Product use issue [Unknown]
  - Breast cancer [Not Recovered/Not Resolved]
